FAERS Safety Report 5570404-2 (Version None)
Quarter: 2007Q4

REPORT INFORMATION
  Report Type: 
  Country: None (occurrence: None)
  Receive Date: 20071221
  Receipt Date: 20071212
  Transmission Date: 20080405
  Serious: Yes (Hospitalization, Other)
  Sender: FDA-Public Use
  Company Number: PHHY2007JP00914

PATIENT
  Age: 75 Year
  Sex: Female

DRUGS (10)
  1. ALTAT [Concomitant]
     Indication: GASTRITIS
     Dosage: 75 MG/DAY
     Route: 048
     Dates: start: 20000618
  2. ALTAT [Concomitant]
     Dosage: 37.5 MG,/DAY
     Route: 048
  3. WARFARIN SODIUM [Concomitant]
     Indication: MYOCARDIAL INFARCTION
     Route: 048
     Dates: start: 20000618, end: 20060914
  4. DIOVAN [Suspect]
     Indication: HYPERTENSION
     Dosage: 80 MG, QD
     Route: 048
     Dates: start: 20040804
  5. NORVASC [Concomitant]
     Indication: HYPERTENSION
     Dosage: 5MG/DAY
     Route: 048
     Dates: start: 20000618
  6. ASPIRIN [Concomitant]
     Indication: MYOCARDIAL INFARCTION
     Dosage: 100 MG/ DAY
     Route: 048
     Dates: start: 20000618
  7. LASIX [Concomitant]
     Indication: HYPERTENSION
     Dosage: 20 MG/DAY
     Route: 048
     Dates: start: 20000618
  8. PANALDINE [Concomitant]
     Indication: MYOCARDIAL INFARCTION
     Dates: start: 20060915, end: 20060929
  9. GLYSENNID [Concomitant]
     Indication: CONSTIPATION
     Route: 048
     Dates: start: 20060830, end: 20061121
  10. MAGLAX [Concomitant]
     Route: 048
     Dates: start: 20061122

REACTIONS (6)
  - ANGINA PECTORIS [None]
  - CHEST PAIN [None]
  - CORONARY ARTERY DISEASE [None]
  - INTESTINAL MASS [None]
  - PERCUTANEOUS CORONARY INTERVENTION [None]
  - SURGERY [None]
